FAERS Safety Report 8986164 (Version 3)
Quarter: 2013Q1

REPORT INFORMATION
  Report Type: Spontaneous
  Country: US (occurrence: None)
  Receive Date: 20121217
  Receipt Date: 20130129
  Transmission Date: 20140127
  Serious: Yes (Other)
  Sender: FDA-Public Use
  Company Number: 2012P1066766

PATIENT
  Age: 55 Year
  Sex: Female
  Weight: 137.89 kg

DRUGS (29)
  1. DURAMORPH [Suspect]
     Indication: PROCEDURAL PAIN
     Dates: start: 2005, end: 2005
  2. ZOLPIDEM TARTRATE [Suspect]
     Indication: INSOMNIA
     Dosage: 5 MG; HS PRN
     Dates: start: 2010
  3. LISINOPRIL-HYDROCHLOROTHIAZIDE [Suspect]
     Indication: HYPERTENSION
     Dates: start: 2008
  4. GABAPENTIN [Suspect]
     Indication: FIBROMYALGIA
     Dates: start: 2010
  5. OMEPRAZOLE [Concomitant]
  6. DIPHENOXYLATE-ATROPIE 2.5-0.025 MG TABLET [Concomitant]
  7. TIZANIDINE HCL TABLET [Concomitant]
  8. FLUTICASONE PROPIONATE 50MCG/ACT SUSPENSION [Concomitant]
  9. NYSTATIN 100000UNIT/GM POWDER [Concomitant]
  10. GLUCOTROL XL TABLET EXTENDED RELEASE 24 HOUR [Concomitant]
  11. PERCOCET [Concomitant]
  12. LORATADINE TABLETS USP [Concomitant]
  13. CENTRUM TABLET [Concomitant]
  14. PROAIR HFA 108 (90 BASE) MCG/ACT AEROSOL SOLUTION [Concomitant]
  15. LAMICTAL TABLET [Concomitant]
  16. TRAZODONE HCL TABLETS USP [Concomitant]
  17. LORAZEPAM TABLET [Concomitant]
  18. BISOPROLOL-HYDROCHLOROTHIAZIDE 5-6.25 MG TABLET [Concomitant]
  19. GLUCOTROL XL TABLET EXTENDED RELEASE 24 HOUR [Concomitant]
  20. SIMVASTATIN TABLETS, USP [Concomitant]
  21. LEVOTHYROXINE SODIUM TABLETS, USP [Concomitant]
  22. WELCHOL TABLET [Concomitant]
  23. TYLENOL ARTHRITIS PAIN TABLET EXTENDED RELEASE [Concomitant]
  24. CYMBALTA CAPSULE DELAYED RELEASE PARTICLES [Concomitant]
  25. TRAMADOL TABLET [Concomitant]
  26. BUMETANIDE TABLET [Concomitant]
  27. POTASSIUM CHLORIDE TABLET EXTENDED RELEASE [Concomitant]
  28. ALBUTEROL SULFATE HFA 108 (90 BASE) MCG/ACT AEROSOL SOLUTION [Concomitant]
  29. SYMBICORT 160-4.5MCG/ACT AEROSOL [Concomitant]

REACTIONS (14)
  - Hypersensitivity [None]
  - Pruritus [None]
  - Wheezing [None]
  - Dyspnoea [None]
  - Hypertension [None]
  - Diverticulum [None]
  - Fibromyalgia [None]
  - Insomnia [None]
  - Diarrhoea [None]
  - Drug effect decreased [None]
  - Cardiac failure congestive [None]
  - Asthma [None]
  - Oxygen saturation decreased [None]
  - Pain [None]
